FAERS Safety Report 5360653-0 (Version None)
Quarter: 2007Q2

REPORT INFORMATION
  Report Type: 
  Country: None (occurrence: None)
  Receive Date: 20070618
  Receipt Date: 20070608
  Transmission Date: 20071010
  Serious: Yes (Other)
  Sender: FDA-Public Use
  Company Number: IS-ROCHE-482580

PATIENT
  Age: 25 Year
  Sex: Female

DRUGS (3)
  1. ROACCUTAN [Suspect]
     Indication: ACNE
     Route: 065
     Dates: start: 20070119, end: 20070123
  2. ROACCUTAN [Suspect]
     Dosage: DOSE AND FREQUENCY REPORTED AS 20 MG X 2.
     Route: 065
     Dates: start: 20060601, end: 20060701
  3. ROACCUTAN [Suspect]
     Dosage: DOSE AND FREQUENCY REPORTED AS 20 MG X1.
     Route: 065
     Dates: start: 20040201, end: 20040601

REACTIONS (2)
  - NO ADVERSE EFFECT [None]
  - PREGNANCY [None]
